FAERS Safety Report 4977664-7 (Version None)
Quarter: 2006Q1

REPORT INFORMATION
  Report Type: 
  Country: None (occurrence: None)
  Receive Date: 20060215
  Receipt Date: 20050405
  Transmission Date: 20060701
  Serious: Yes (Other)
  Sender: FDA-Public Use
  Company Number: MC200500319

PATIENT
  Age: 64 Year
  Sex: Female

DRUGS (11)
  1. ANGIOMAX [Suspect]
     Dosage: 0.75 MG/KG, BOLUS ; 1.75 MG/KG, HR
     Dates: start: 20050404, end: 20050404
  2. KLONOPIN [Concomitant]
  3. ZOCOR [Concomitant]
  4. FLEXERIL [Concomitant]
  5. XANAX [Concomitant]
  6. SEROQUEL [Concomitant]
  7. ASPIRIN [Concomitant]
  8. NITROGLYCERIN ^A.L.^ (GLYCERYL TRINITRATE) [Concomitant]
  9. LEXAPRO [Concomitant]
  10. VERSED [Concomitant]
  11. DEMEROL [Concomitant]

REACTIONS (1)
  - STENT OCCLUSION [None]
